FAERS Safety Report 24257818 (Version 3)
Quarter: 2024Q3

REPORT INFORMATION
  Report Type: Spontaneous
  Country: KZ (occurrence: KZ)
  Receive Date: 20240828
  Receipt Date: 20240919
  Transmission Date: 20241016
  Serious: Yes (Congenital Anomaly)
  Sender: BIOGEN
  Company Number: KZ-BIOGEN-2024BI01279287

PATIENT
  Sex: Male

DRUGS (1)
  1. PLEGRIDY [Suspect]
     Active Substance: PEGINTERFERON BETA-1A
     Indication: Maternal exposure timing unspecified
     Route: 050
     Dates: start: 202012, end: 202404

REACTIONS (2)
  - Foetal cystic hygroma [Not Recovered/Not Resolved]
  - Foetal exposure during pregnancy [Recovered/Resolved]

NARRATIVE: CASE EVENT DATE: 20240401
